FAERS Safety Report 21490381 (Version 1)
Quarter: 2022Q4

REPORT INFORMATION
  Report Type: Spontaneous
  Country: CN (occurrence: CN)
  Receive Date: 20221021
  Receipt Date: 20221021
  Transmission Date: 20230113
  Serious: Yes (Other)
  Sender: FDA-Public Use
  Company Number: None

PATIENT
  Age: 34 Year
  Sex: Female
  Weight: 52 kg

DRUGS (7)
  1. CYCLOPHOSPHAMIDE [Suspect]
     Active Substance: CYCLOPHOSPHAMIDE
     Indication: Breast cancer female
     Dosage: 800 MG QD, DILUTED WITH 0.9 % SODIUM CHLORIDE (40ML), FIRST CHEMOTHERAPY
     Route: 041
     Dates: start: 20220720, end: 20220720
  2. CYCLOPHOSPHAMIDE [Suspect]
     Active Substance: CYCLOPHOSPHAMIDE
     Indication: Chemotherapy
  3. SODIUM CHLORIDE [Suspect]
     Active Substance: SODIUM CHLORIDE
     Indication: Medication dilution
     Dosage: FIRST CHEMOTHERAPY, 40 ML QD, DILUTED IN CYCLOPHOSPHAMIDE 800 MG
     Route: 041
     Dates: start: 20220720, end: 20220720
  4. SODIUM CHLORIDE [Suspect]
     Active Substance: SODIUM CHLORIDE
     Dosage: FIRST CHEMOTHERAPY, 100 ML QD, DILUTED IN EPIRUBICIN HYDROCHLORIDE 125 MG
     Route: 041
     Dates: start: 20220720, end: 20220720
  5. EPIRUBICIN HYDROCHLORIDE [Suspect]
     Active Substance: EPIRUBICIN HYDROCHLORIDE
     Indication: Breast cancer female
     Dosage: 125 MG QD, DILUTED WITH 0.9 % SODIUM CHLORIDE (100ML), FIRST CHEMOTHERAPY,
     Route: 041
     Dates: start: 20220720, end: 20220720
  6. EPIRUBICIN HYDROCHLORIDE [Suspect]
     Active Substance: EPIRUBICIN HYDROCHLORIDE
     Indication: Chemotherapy
  7. PEGYLATED RECOMBINANT HUMAN GRANULOCYTE COLONY-STIMULATING FACTOR [Concomitant]
     Indication: Product used for unknown indication
     Dosage: 3 MG
     Route: 058
     Dates: start: 20220721

REACTIONS (2)
  - White blood cell count decreased [Recovered/Resolved]
  - Agranulocytosis [Recovered/Resolved]

NARRATIVE: CASE EVENT DATE: 20220728
